FAERS Safety Report 17918992 (Version 2)
Quarter: 2020Q4

REPORT INFORMATION
  Report Type: Spontaneous
  Country: CA (occurrence: CA)
  Receive Date: 20200619
  Receipt Date: 20201223
  Transmission Date: 20210113
  Serious: Yes (Life-Threatening, Hospitalization, Other)
  Sender: FDA-Public Use
  Company Number: CA-UNITED THERAPEUTICS-UNT-2020-008837

PATIENT
  Age: 4 Year
  Sex: Male
  Weight: 14.5 kg

DRUGS (14)
  1. MELATONIN [Concomitant]
     Active Substance: MELATONIN
     Indication: PRODUCT USED FOR UNKNOWN INDICATION
     Dosage: 3 MG, QHS
     Route: 048
     Dates: start: 20180923, end: 20180927
  2. ONDANSETRON [Concomitant]
     Active Substance: ONDANSETRON
     Indication: PRODUCT USED FOR UNKNOWN INDICATION
     Dosage: 2-3 MG, EVERY 4-8 HOURS AS NEEDED OR PRECHEMOTHERAPY
     Route: 042
     Dates: start: 20180924
  3. GABAPENTIN. [Concomitant]
     Active Substance: GABAPENTIN
     Indication: PRODUCT USED FOR UNKNOWN INDICATION
     Dosage: 70-100 MG, TWICE A DAY TO THREE TIMES A DAY
     Route: 048
     Dates: start: 20180921, end: 20180926
  4. ACETAMINOPHEN. [Concomitant]
     Active Substance: ACETAMINOPHEN
     Indication: PRODUCT USED FOR UNKNOWN INDICATION
     Dosage: 160 MG, EVERY 4 HOURS AS NEEDED OR PRECHEMOTHERAPY
     Route: 048
     Dates: start: 20180923
  5. FUROSEMIDE. [Concomitant]
     Active Substance: FUROSEMIDE
     Indication: PRODUCT USED FOR UNKNOWN INDICATION
     Dosage: 2 MG, FOR ONE DOSE
     Route: 042
     Dates: start: 20180924, end: 20180925
  6. MEPERIDINE [PETHIDINE] [Concomitant]
     Active Substance: MEPERIDINE
     Indication: PRODUCT USED FOR UNKNOWN INDICATION
     Dosage: 3.6 MG, PRN (EVERY 6 HOURS AS NEEDED)
     Route: 042
     Dates: start: 20180924, end: 20180928
  7. TRIMETHOPRIM SULFAMETHOXAZOLE [Concomitant]
     Active Substance: SULFAMETHOXAZOLE\TRIMETHOPRIM
     Indication: PRODUCT USED FOR UNKNOWN INDICATION
     Dosage: 48-50 MG, EVERY DAY OR TWICE A DAY 3 TIMES A WEEK
     Route: 048
     Dates: start: 20180923, end: 20180927
  8. DIMENHYDRINATE. [Concomitant]
     Active Substance: DIMENHYDRINATE
     Indication: PRODUCT USED FOR UNKNOWN INDICATION
     Dosage: 15 MG, PRN (EVERY 6 HOURS AS NEEDED)
     Route: 042
     Dates: start: 20180924, end: 20180926
  9. CALCIUM +D3 [Concomitant]
     Active Substance: CALCIUM\CHOLECALCIFEROL
     Indication: PRODUCT USED FOR UNKNOWN INDICATION
     Dosage: 1 TABLET, EVERY DAY
     Route: 048
     Dates: start: 20180923, end: 20180927
  10. FAMCICLOVIR. [Concomitant]
     Active Substance: FAMCICLOVIR
     Indication: PRODUCT USED FOR UNKNOWN INDICATION
     Dosage: 125 MG, BID
     Route: 048
     Dates: start: 20180923, end: 20180927
  11. HEPARIN [Concomitant]
     Active Substance: HEPARIN SODIUM
     Indication: PRODUCT USED FOR UNKNOWN INDICATION
     Dosage: 25 IU, EVERY DAY OR AS NEEDED
     Route: 042
     Dates: start: 20180923, end: 20180925
  12. HYDROMORPHONE [Concomitant]
     Active Substance: HYDROMORPHONE
     Indication: PRODUCT USED FOR UNKNOWN INDICATION
     Dosage: 10 MG, ACCORDING TO PRESCRIPTION
     Route: 042
     Dates: start: 20180924
  13. METHYLPREDNISOLONE. [Concomitant]
     Active Substance: METHYLPREDNISOLONE
     Indication: PRODUCT USED FOR UNKNOWN INDICATION
     Dosage: 15 MG, Q6H
     Route: 042
     Dates: start: 20180925, end: 20180927
  14. UNITUXIN [Suspect]
     Active Substance: DINUTUXIMAB
     Indication: NEUROBLASTOMA
     Dosage: 11 MG, CYCLICAL
     Route: 041
     Dates: start: 20180925, end: 20180925

REACTIONS (1)
  - Anaphylactic reaction [Recovered/Resolved]

NARRATIVE: CASE EVENT DATE: 20180925
